FAERS Safety Report 25036272 (Version 1)
Quarter: 2025Q1

REPORT INFORMATION
  Report Type: Spontaneous
  Country: BG (occurrence: BG)
  Receive Date: 20250304
  Receipt Date: 20250304
  Transmission Date: 20250409
  Serious: Yes (Hospitalization)
  Sender: MYLAN
  Company Number: BG-MYLANLABS-2025M1016530

PATIENT
  Age: 81 Year

DRUGS (5)
  1. ATENOLOL [Suspect]
     Active Substance: ATENOLOL
     Indication: Hypertension
     Dosage: 25 MILLIGRAM, BID
     Dates: end: 202304
  2. AMLODIPINE\VALSARTAN [Suspect]
     Active Substance: AMLODIPINE\VALSARTAN
     Indication: Hypertension
     Dosage: 0.5 DOSAGE FORM, BID
     Dates: start: 202304
  3. NIFEDIPINE [Suspect]
     Active Substance: NIFEDIPINE
     Indication: Hypertension
     Dosage: 20 MILLIGRAM, BID
     Dates: end: 202304
  4. PROPAFENONE [Suspect]
     Active Substance: PROPAFENONE
     Indication: Hypertension
     Dosage: 150 MILLIGRAM, BID
     Dates: start: 202304
  5. ATORVASTATIN [Concomitant]
     Active Substance: ATORVASTATIN
     Indication: Dyslipidaemia
     Dosage: 10 MILLIGRAM, QD

REACTIONS (3)
  - Keratoacanthoma [Recovering/Resolving]
  - Basal cell carcinoma [Recovering/Resolving]
  - Product with quality issue administered [Unknown]
